FAERS Safety Report 20976347 (Version 1)
Quarter: 2022Q2

REPORT INFORMATION
  Report Type: Spontaneous
  Country: CN (occurrence: CN)
  Receive Date: 20220617
  Receipt Date: 20220617
  Transmission Date: 20220721
  Serious: Yes (Hospitalization)
  Sender: FDA-Public Use
  Company Number: CN-PFIZER INC-PV202200003170

PATIENT
  Age: 82 Year
  Sex: Female
  Weight: 50 kg

DRUGS (6)
  1. CELEBREX [Suspect]
     Active Substance: CELECOXIB
     Indication: Analgesic therapy
     Dosage: 1 CAPSULE, 2X/DAY
     Route: 048
     Dates: start: 20191121, end: 20191125
  2. OLANZAPINE [Suspect]
     Active Substance: OLANZAPINE
     Indication: Organic brain syndrome
     Dosage: 1 TABLET, 1X/DAY
     Route: 048
     Dates: start: 20191126, end: 20191202
  3. CEFTIZOXIME SODIUM [Suspect]
     Active Substance: CEFTIZOXIME SODIUM
     Indication: Infection prophylaxis
     Dosage: 1.5 G, 2X/DAY
     Route: 041
     Dates: start: 20191122, end: 20191127
  4. VALPROATE SODIUM [Concomitant]
     Active Substance: VALPROATE SODIUM
     Indication: Epilepsy
     Dosage: 1 TABLET, 2X/DAY
     Route: 048
     Dates: start: 20191126, end: 20191209
  5. SODIUM CHLORIDE [Concomitant]
     Active Substance: SODIUM CHLORIDE
     Indication: Vehicle solution use
     Dosage: 100 ML, 2X/DAY
     Route: 041
     Dates: start: 20191122, end: 20191127
  6. METOPROLOL SUCCINATE [Concomitant]
     Active Substance: METOPROLOL SUCCINATE
     Indication: Blood pressure increased
     Dosage: 1 TABLET, 1X/DAY
     Route: 048
     Dates: start: 20191124, end: 20191215

REACTIONS (2)
  - Liver injury [Recovering/Resolving]
  - Hepatic enzyme increased [Recovering/Resolving]

NARRATIVE: CASE EVENT DATE: 20191203
